FAERS Safety Report 19856569 (Version 1)
Quarter: 2021Q3

REPORT INFORMATION
  Report Type: Spontaneous
  Country: DE (occurrence: DE)
  Receive Date: 20210920
  Receipt Date: 20210920
  Transmission Date: 20211014
  Serious: Yes (Other)
  Sender: FDA-Public Use
  Company Number: DE-BEH-2021135893

PATIENT
  Age: 30 Year
  Sex: Female

DRUGS (4)
  1. RHOPHYLAC [Suspect]
     Active Substance: HUMAN RHO(D) IMMUNE GLOBULIN
     Indication: POST ABORTION HAEMORRHAGE
     Dosage: 300 MICROGRAM, SINGLE
     Route: 030
     Dates: start: 20210907, end: 20210907
  2. RHOPHYLAC [Suspect]
     Active Substance: HUMAN RHO(D) IMMUNE GLOBULIN
     Indication: POST ABORTION HAEMORRHAGE
     Dosage: 300 MICROGRAM, SINGLE
     Route: 030
     Dates: start: 20210907, end: 20210907
  3. RHOPHYLAC [Suspect]
     Active Substance: HUMAN RHO(D) IMMUNE GLOBULIN
     Indication: IMMINENT ABORTION
  4. RHOPHYLAC [Suspect]
     Active Substance: HUMAN RHO(D) IMMUNE GLOBULIN
     Indication: IMMINENT ABORTION

REACTIONS (3)
  - Wrong patient received product [Unknown]
  - No adverse event [Unknown]
  - Post abortion haemorrhage [Not Recovered/Not Resolved]
